FAERS Safety Report 4619530-2 (Version None)
Quarter: 2005Q1

REPORT INFORMATION
  Report Type: 
  Country: None (occurrence: None)
  Receive Date: 20050324
  Receipt Date: 20050316
  Transmission Date: 20050727
  Serious: Yes (Other)
  Sender: FDA-Public Use
  Company Number: US-2005-003783

PATIENT
  Sex: Male

DRUGS (1)
  1. MIRENA [Suspect]
     Dates: start: 20040301

REACTIONS (2)
  - ACCIDENTAL EXPOSURE [None]
  - PROSTATE CANCER [None]
